FAERS Safety Report 8918441 (Version 1)
Quarter: 2012Q4

REPORT INFORMATION
  Report Type: 
  Country: US (occurrence: US)
  Receive Date: 20121120
  Receipt Date: 20121120
  Transmission Date: 20130627
  Serious: No
  Sender: FDA-Public Use
  Company Number: US-ASTRAZENECA-2012SE27008

PATIENT
  Age: 56 Year
  Sex: Female
  Weight: 68.9 kg

DRUGS (4)
  1. NEXIUM [Suspect]
     Indication: DYSPEPSIA
     Dosage: ONCE DAILY
     Route: 048
  2. CALCIUM [Concomitant]
  3. CLONAZEPAM [Concomitant]
     Indication: ANXIETY
  4. VESICARE [Concomitant]
     Indication: BLADDER DISORDER

REACTIONS (5)
  - Gastrooesophageal reflux disease [Unknown]
  - Aphagia [Unknown]
  - Dyspepsia [Unknown]
  - Vomiting [Unknown]
  - Intentional drug misuse [Unknown]
